FAERS Safety Report 4704455-4 (Version None)
Quarter: 2005Q2

REPORT INFORMATION
  Report Type: 
  Country: None (occurrence: None)
  Receive Date: 20050630
  Receipt Date: 20050630
  Transmission Date: 20051028
  Serious: No
  Sender: FDA-Public Use
  Company Number: None

PATIENT
  Sex: Male
  Weight: 73 kg

DRUGS (2)
  1. CYTARABINE [Suspect]
     Dosage: 100 MG/M2/DAY BY CIV ON DAYS 1-7
     Route: 042
     Dates: start: 20050405, end: 20050619
  2. DAUNORUBICIN [Suspect]
     Dosage: 60 MG/M2/DAY BY IVP ON DAYS 1-3
     Route: 042

REACTIONS (3)
  - HAEMATURIA [None]
  - LOWER GASTROINTESTINAL HAEMORRHAGE [None]
  - THROMBOCYTOPENIA [None]
